FAERS Safety Report 21690452 (Version 6)
Quarter: 2023Q1

REPORT INFORMATION
  Report Type: Report from Study
  Country: US (occurrence: US)
  Receive Date: 20221206
  Receipt Date: 20230302
  Transmission Date: 20230417
  Serious: Yes (Other)
  Sender: FDA-Public Use
  Company Number: US-BEH-2022152643

PATIENT
  Age: 56 Year
  Sex: Female

DRUGS (2)
  1. HIZENTRA [Suspect]
     Active Substance: HUMAN IMMUNOGLOBULIN G
     Indication: Primary immunodeficiency syndrome
     Dosage: 12 GRAM, QW
     Route: 058
     Dates: start: 20221116
  2. HIZENTRA [Suspect]
     Active Substance: HUMAN IMMUNOGLOBULIN G
     Dosage: UNK
     Route: 065
     Dates: start: 202211

REACTIONS (23)
  - Dizziness [Not Recovered/Not Resolved]
  - Hyperaesthesia [Not Recovered/Not Resolved]
  - Genital hyperaesthesia [Not Recovered/Not Resolved]
  - Headache [Not Recovered/Not Resolved]
  - Ear infection [Unknown]
  - Ear pain [Unknown]
  - Neck pain [Unknown]
  - Blood pressure increased [Recovered/Resolved]
  - Nervousness [Unknown]
  - Infusion site bruising [Recovered/Resolved]
  - Infusion site haemorrhage [Recovered/Resolved]
  - Infusion site pain [Not Recovered/Not Resolved]
  - No adverse event [Unknown]
  - Product prescribing issue [Unknown]
  - Product prescribing issue [Unknown]
  - No adverse event [Unknown]
  - Insurance issue [Unknown]
  - Blood immunoglobulin G decreased [Unknown]
  - No adverse event [Unknown]
  - Feeling abnormal [Unknown]
  - Product dose omission issue [Unknown]
  - Primary immunodeficiency syndrome [Unknown]
  - Product dose omission issue [Unknown]

NARRATIVE: CASE EVENT DATE: 20221101
